FAERS Safety Report 5022029-5 (Version None)
Quarter: 2006Q2

REPORT INFORMATION
  Report Type: 
  Country: None (occurrence: None)
  Receive Date: 20060425
  Receipt Date: 20050120
  Transmission Date: 20061013
  Serious: Yes (Hospitalization)
  Sender: FDA-Public Use
  Company Number: TEST00206000261

PATIENT
  Age: 43 Year
  Sex: Male
  Weight: 147 kg

DRUGS (7)
  1. ANDROGEL (TESTOSTERONE 1% GEL) [Suspect]
     Indication: BLOOD TESTOSTERONE DECREASED
     Dosage: 5 + 7.5 GRAM(S) QD TRANSCUTANEOUS DAILY DOSE
     Dates: start: 20020701, end: 20051116
  2. ANDROGEL (TESTOSTERONE 1% GEL) [Suspect]
     Indication: BLOOD TESTOSTERONE DECREASED
     Dosage: 5 + 7.5 GRAM(S) QD TRANSCUTANEOUS DAILY DOSE
     Dates: start: 20051214, end: 20060120
  3. VASOTEC [Concomitant]
  4. LANOXIN [Concomitant]
  5. BONIVA 9BONIVA) [Concomitant]
  6. CALCIUM (ACLCIUM) [Concomitant]
  7. INSPRA (INSPRA) [Concomitant]

REACTIONS (5)
  - ACNE [None]
  - DRY SKIN [None]
  - DYSURIA [None]
  - OEDEMA PERIPHERAL [None]
  - SLEEP APNOEA SYNDROME [None]
